FAERS Safety Report 24130443 (Version 1)
Quarter: 2024Q3

REPORT INFORMATION
  Report Type: Spontaneous
  Country: CN (occurrence: CN)
  Receive Date: 20240724
  Receipt Date: 20240724
  Transmission Date: 20241017
  Serious: Yes (Hospitalization)
  Sender: TERSERA THERAPEUTICS
  Company Number: CN-AstraZeneca-2024A146549

PATIENT

DRUGS (2)
  1. GOSERELIN [Suspect]
     Active Substance: GOSERELIN
     Indication: Uterine leiomyoma
     Dosage: 3.6MG UNKNOWN
     Route: 058
  2. ZOLADEX [Suspect]
     Active Substance: GOSERELIN ACETATE
     Indication: Uterine leiomyoma
     Dosage: UNK
     Route: 065

REACTIONS (4)
  - Herpes zoster [Recovered/Resolved]
  - Generalised oedema [Recovering/Resolving]
  - Rash [Recovering/Resolving]
  - Erythema [Recovering/Resolving]
